FAERS Safety Report 5301600-7 (Version None)
Quarter: 2007Q1

REPORT INFORMATION
  Report Type: 
  Country: None (occurrence: None)
  Receive Date: 20070201
  Receipt Date: 20061218
  Transmission Date: 20070707
  Serious: No
  Sender: FDA-Public Use
  Company Number: 2006PV027109

PATIENT
  Age: 49 Year
  Sex: Female
  Weight: 84.1422 kg

DRUGS (2)
  1. BYETTA [Suspect]
     Indication: DIABETES MELLITUS NON-INSULIN-DEPENDENT
     Dosage: SEE IMAGE
     Route: 058
     Dates: start: 20060901, end: 20061001
  2. BYETTA [Suspect]
     Indication: DIABETES MELLITUS NON-INSULIN-DEPENDENT
     Dosage: SEE IMAGE
     Route: 058
     Dates: start: 20061001

REACTIONS (5)
  - BLOOD GLUCOSE DECREASED [None]
  - FEELING COLD [None]
  - HEART RATE INCREASED [None]
  - NAUSEA [None]
  - VISUAL ACUITY REDUCED [None]
